FAERS Safety Report 25331198 (Version 3)
Quarter: 2025Q3

REPORT INFORMATION
  Report Type: Spontaneous
  Country: US (occurrence: US)
  Receive Date: 20250519
  Receipt Date: 20250730
  Transmission Date: 20251021
  Serious: Yes (Other)
  Sender: PFIZER
  Company Number: US-PFIZER INC-202200376797

PATIENT
  Age: 88 Year
  Sex: Female
  Weight: 52.789 kg

DRUGS (2)
  1. IBRANCE [Suspect]
     Active Substance: PALBOCICLIB
     Indication: Invasive ductal breast carcinoma
     Route: 048
  2. IBRANCE [Suspect]
     Active Substance: PALBOCICLIB
     Indication: Breast cancer female
     Route: 048
     Dates: start: 20250512

REACTIONS (3)
  - Invasive ductal breast carcinoma [Unknown]
  - Recurrent cancer [Unknown]
  - Blood test abnormal [Unknown]
